FAERS Safety Report 7178967-0 (Version None)
Quarter: 2010Q4

REPORT INFORMATION
  Report Type: 
  Country: None (occurrence: None)
  Receive Date: 20101221
  Receipt Date: 20101207
  Transmission Date: 20110411
  Serious: Yes (Disabling, Other)
  Sender: FDA-Public Use
  Company Number: PHHY2010AU83172

PATIENT
  Sex: Female
  Weight: 82 kg

DRUGS (3)
  1. CLOZARIL [Suspect]
     Route: 048
  2. SOLIAN [Concomitant]
     Dosage: 800 MG, UNK
     Route: 048
     Dates: start: 20031120
  3. ABILIFY [Concomitant]
     Dosage: 15 MG, UNK
     Route: 048

REACTIONS (3)
  - DIABETES MELLITUS [None]
  - MALAISE [None]
  - WEIGHT FLUCTUATION [None]
